FAERS Safety Report 5349586-3 (Version None)
Quarter: 2007Q2

REPORT INFORMATION
  Report Type: 
  Country: None (occurrence: None)
  Receive Date: 20070607
  Receipt Date: 20070529
  Transmission Date: 20071010
  Serious: Yes (Hospitalization, Other)
  Sender: FDA-Public Use
  Company Number: US-ELI_LILLY_AND_COMPANY-US200705006982

PATIENT
  Sex: Female

DRUGS (4)
  1. FORTEO [Suspect]
     Indication: OSTEOPOROSIS
     Dosage: UNK D/F, UNK
     Dates: start: 20050101, end: 20051101
  2. FORTEO [Suspect]
     Dosage: UNK D/F, UNK
     Dates: start: 20060101, end: 20060801
  3. FORTEO [Suspect]
     Dosage: UNK D/F, UNK
     Dates: start: 20061001, end: 20061201
  4. FORTEO [Suspect]
     Dosage: UNK D/F, UNK
     Dates: start: 20070501

REACTIONS (4)
  - FALL [None]
  - HIP FRACTURE [None]
  - INJECTION SITE PAIN [None]
  - UPPER LIMB FRACTURE [None]
